FAERS Safety Report 9836467 (Version 1)
Quarter: 2014Q1

REPORT INFORMATION
  Report Type: Report from Study
  Country: GB (occurrence: CF)
  Receive Date: 20140123
  Receipt Date: 20140123
  Transmission Date: 20141002
  Serious: Yes (Other)
  Sender: FDA-Public Use
  Company Number: GB-ROCHE-1337431

PATIENT
  Sex: Female

DRUGS (4)
  1. DIAZEPAM [Suspect]
     Indication: SEDATION
     Route: 042
  2. DIAZEPAM [Suspect]
     Route: 042
  3. DIHYDRALAZINE SULFATE [Suspect]
     Indication: HYPERTENSION
     Route: 042
  4. DIHYDRALAZINE SULFATE [Suspect]
     Route: 042

REACTIONS (2)
  - Foetal death [Unknown]
  - Maternal exposure during pregnancy [Unknown]
